FAERS Safety Report 10689401 (Version 1)
Quarter: 2015Q1

REPORT INFORMATION
  Report Type: Spontaneous
  Country: US (occurrence: None)
  Receive Date: 20150102
  Receipt Date: 20150102
  Transmission Date: 20150720
  Serious: Yes (Life-Threatening, Hospitalization)
  Sender: FDA-Public Use
  Company Number: None

PATIENT
  Age: 63 Year
  Sex: Female
  Weight: 77.3 kg

DRUGS (2)
  1. TRAMADOL [Suspect]
     Active Substance: TRAMADOL
     Indication: PAIN
     Dates: start: 20140807, end: 20140813
  2. BUPROPION [Suspect]
     Active Substance: BUPROPION
     Indication: AFFECTIVE DISORDER
     Dosage: MG, PO
     Route: 048
     Dates: start: 20131209, end: 20140811

REACTIONS (4)
  - Urinary tract infection bacterial [None]
  - Drug resistance [None]
  - Generalised tonic-clonic seizure [None]
  - Refusal of treatment by patient [None]

NARRATIVE: CASE EVENT DATE: 20140808
